FAERS Safety Report 12340650 (Version 1)
Quarter: 2016Q2

REPORT INFORMATION
  Report Type: Spontaneous
  Country: US (occurrence: US)
  Receive Date: 20160506
  Receipt Date: 20160506
  Transmission Date: 20160815
  Serious: Yes (Hospitalization, Other)
  Sender: FDA-Public Use
  Company Number: US-SCIEGEN PHARMACEUTICALS INC-2016SCILIT00109

PATIENT

DRUGS (8)
  1. FLUOXETINE [Suspect]
     Active Substance: FLUOXETINE HYDROCHLORIDE
     Indication: THINKING ABNORMAL
     Dosage: 20 MG, UNK
     Route: 065
  2. RISPERIDONE. [Suspect]
     Active Substance: RISPERIDONE
     Indication: THINKING ABNORMAL
     Dosage: 3MG AT NIGHT AND 1MG
     Route: 065
  3. FLUOXETINE [Suspect]
     Active Substance: FLUOXETINE HYDROCHLORIDE
     Indication: ANXIETY
     Dosage: 10 MG, QD
     Route: 065
  4. BUPROPION. [Suspect]
     Active Substance: BUPROPION
     Indication: PRODUCT USED FOR UNKNOWN INDICATION
  5. RISPERIDONE. [Suspect]
     Active Substance: RISPERIDONE
     Indication: ANXIETY
     Dosage: 0.25 MG, BID
     Route: 065
  6. ZIPRASIDONE. [Suspect]
     Active Substance: ZIPRASIDONE
     Indication: PRODUCT USED FOR UNKNOWN INDICATION
     Dosage: 40 MG, UNK
     Route: 065
  7. ZIPRASIDONE. [Suspect]
     Active Substance: ZIPRASIDONE
     Dosage: 80 MG, UNK
     Route: 065
  8. LAMOTRIGINE TABLETS [Suspect]
     Active Substance: LAMOTRIGINE
     Indication: BIPOLAR DISORDER
     Dosage: 250 MG, UNK
     Route: 065

REACTIONS (15)
  - Cognitive disorder [Unknown]
  - Emotional distress [Unknown]
  - Anhedonia [Unknown]
  - Bipolar disorder [Unknown]
  - Intrusive thoughts [Not Recovered/Not Resolved]
  - Agitation [Unknown]
  - Obsessive thoughts [Recovering/Resolving]
  - Suicidal ideation [Unknown]
  - Attention-seeking behaviour [Recovered/Resolved]
  - Compulsions [Recovering/Resolving]
  - Anxiety [Unknown]
  - Fatigue [Unknown]
  - Insomnia [Recovered/Resolved]
  - Irritability [Unknown]
  - Decreased interest [Unknown]
